FAERS Safety Report 4430305-X (Version None)
Quarter: 2004Q3

REPORT INFORMATION
  Report Type: 
  Country: None (occurrence: None)
  Receive Date: 20040820
  Receipt Date: 20040804
  Transmission Date: 20050211
  Serious: Yes (Hospitalization)
  Sender: FDA-Public Use
  Company Number: PHRM2004FR02521

PATIENT
  Age: 24 Hour
  Sex: Male
  Weight: 2 kg

DRUGS (9)
  1. NEORAL [Suspect]
     Route: 064
  2. PREDNISONE TAB [Suspect]
     Route: 064
  3. CELLCEPT [Suspect]
     Route: 064
  4. SECTRAL [Concomitant]
     Route: 064
  5. ALDOMET [Concomitant]
     Route: 064
  6. NEORECORMON ^ROCHE^ [Concomitant]
     Route: 064
  7. VENOFER [Concomitant]
     Route: 064
  8. FOLIC ACID [Concomitant]
     Route: 064
  9. FUMAFER [Concomitant]
     Route: 064

REACTIONS (9)
  - BRADYCARDIA NEONATAL [None]
  - CYANOSIS NEONATAL [None]
  - DRUG EXPOSURE DURING PREGNANCY [None]
  - GRANULOCYTOPENIA NEONATAL [None]
  - HYPOTHERMIA NEONATAL [None]
  - MALAISE [None]
  - NEONATAL INFECTION [None]
  - REGURGITATION OF FOOD [None]
  - SMALL FOR DATES BABY [None]
